FAERS Safety Report 8569227 (Version 2)
Quarter: 2012Q4

REPORT INFORMATION
  Report Type: 
  Country: AU (occurrence: AU)
  Receive Date: 20120518
  Receipt Date: 20121217
  Transmission Date: 20130627
  Serious: No
  Sender: FDA-Public Use
  Company Number: AU-ALLERGAN-1206858US

PATIENT
  Sex: Female

DRUGS (1)
  1. BOTOX� [Suspect]
     Indication: GLABELLAR FROWN LINES
     Dosage: 25 UNITS, single
     Dates: start: 20120501, end: 20120501

REACTIONS (4)
  - Oropharyngeal pain [Unknown]
  - Dysphagia [Unknown]
  - Dyspnoea [Unknown]
  - Vision blurred [Unknown]
